FAERS Safety Report 5006323-X (Version None)
Quarter: 2006Q2

REPORT INFORMATION
  Report Type: 
  Country: None (occurrence: None)
  Receive Date: 20060516
  Receipt Date: 20060428
  Transmission Date: 20061013
  Serious: Yes (Hospitalization)
  Sender: FDA-Public Use
  Company Number: 2006058497

PATIENT
  Age: 63 Year
  Sex: Male

DRUGS (1)
  1. BEXTRA [Suspect]
     Indication: ARTHRITIS
     Dosage: 10 MG
     Dates: start: 20030116

REACTIONS (8)
  - CEREBROVASCULAR ACCIDENT [None]
  - CHRONIC OBSTRUCTIVE PULMONARY DISEASE [None]
  - DIARRHOEA HAEMORRHAGIC [None]
  - HERNIA REPAIR [None]
  - INTERVERTEBRAL DISC OPERATION [None]
  - PNEUMONIA [None]
  - SURGERY [None]
  - TRANSIENT ISCHAEMIC ATTACK [None]
